FAERS Safety Report 5397813-9 (Version None)
Quarter: 2007Q3

REPORT INFORMATION
  Report Type: 
  Country: None (occurrence: None)
  Receive Date: 20070723
  Receipt Date: 20070607
  Transmission Date: 20080115
  Serious: Yes (Other)
  Sender: FDA-Public Use
  Company Number: GXKR2007IE05021

PATIENT
  Age: 53 Year
  Sex: Male

DRUGS (1)
  1. DICLAC            (DICLOFENAC) [Suspect]
     Dosage: ORAL
     Route: 048
     Dates: start: 20061125, end: 20061125

REACTIONS (7)
  - CHILLS [None]
  - DIARRHOEA [None]
  - DYSPNOEA [None]
  - PHOTOPHOBIA [None]
  - PRURITUS [None]
  - PYREXIA [None]
  - TACHYCARDIA [None]
